FAERS Safety Report 19392507 (Version 2)
Quarter: 2021Q2

REPORT INFORMATION
  Report Type: Report from Study
  Country: None (occurrence: CA)
  Receive Date: 20210608
  Receipt Date: 20210624
  Transmission Date: 20210717
  Serious: Yes (Other)
  Sender: FDA-Public Use
  Company Number: CA-ABBVIE-21K-028-3939914-00

PATIENT
  Sex: Male

DRUGS (1)
  1. RINVOQ [Suspect]
     Active Substance: UPADACITINIB
     Indication: RHEUMATOID ARTHRITIS
     Route: 048
     Dates: start: 20200221

REACTIONS (8)
  - Hyperkeratosis [Not Recovered/Not Resolved]
  - Precancerous skin lesion [Unknown]
  - Mood swings [Not Recovered/Not Resolved]
  - Libido decreased [Unknown]
  - Irritability [Not Recovered/Not Resolved]
  - Rash [Unknown]
  - Erythema [Unknown]
  - Skin exfoliation [Unknown]

NARRATIVE: CASE EVENT DATE: 2020
